FAERS Safety Report 4687647-2 (Version None)
Quarter: 2005Q2

REPORT INFORMATION
  Report Type: 
  Country: None (occurrence: None)
  Receive Date: 20050610
  Receipt Date: 20050510
  Transmission Date: 20051028
  Serious: Yes (Hospitalization)
  Sender: FDA-Public Use
  Company Number: FR-BRISTOL-MYERS SQUIBB COMPANY-12974200

PATIENT
  Age: 1 Day
  Sex: Female
  Weight: 2 kg

DRUGS (6)
  1. REYATAZ [Suspect]
     Indication: HIV INFECTION
     Route: 064
     Dates: start: 20040801, end: 20050324
  2. VIDEX EC [Suspect]
     Indication: HIV INFECTION
     Route: 064
     Dates: start: 20040801, end: 20050324
  3. NORVIR [Suspect]
     Indication: HIV INFECTION
     Route: 064
     Dates: start: 20040801, end: 20050324
  4. EPIVIR [Suspect]
     Indication: HIV INFECTION
     Route: 064
     Dates: start: 20041028, end: 20050324
  5. VIREAD [Suspect]
     Indication: HIV INFECTION
     Route: 064
     Dates: start: 20040801, end: 20041028
  6. RETROVIR [Suspect]
     Indication: PROPHYLAXIS
     Dates: start: 20050328

REACTIONS (2)
  - ENTEROCOLITIS HAEMORRHAGIC [None]
  - HYPOGLYCAEMIA [None]
